FAERS Safety Report 22390135 (Version 11)
Quarter: 2024Q2

REPORT INFORMATION
  Report Type: Spontaneous
  Country: US (occurrence: US)
  Receive Date: 20230531
  Receipt Date: 20240412
  Transmission Date: 20240716
  Serious: No
  Sender: FDA-Public Use
  Company Number: US-PFIZER INC-PV202300091410

PATIENT
  Age: 81 Year
  Sex: Female
  Weight: 81.65 kg

DRUGS (7)
  1. BRAFTOVI [Suspect]
     Active Substance: ENCORAFENIB
     Indication: Malignant melanoma
     Dosage: TAKE 5 CAPSULES DAILY
     Route: 048
  2. BRAFTOVI [Suspect]
     Active Substance: ENCORAFENIB
     Dosage: 75 MG, 1X/DAY
     Route: 048
     Dates: start: 2023
  3. MEKTOVI [Suspect]
     Active Substance: BINIMETINIB
     Indication: Malignant melanoma
     Dosage: TAKE 2 TABLETS TWICE DAILY
     Route: 048
     Dates: start: 2023
  4. MEKTOVI [Suspect]
     Active Substance: BINIMETINIB
     Dosage: 3 A DAY
  5. MEKTOVI [Suspect]
     Active Substance: BINIMETINIB
     Dosage: 15 MG
  6. MEKTOVI [Suspect]
     Active Substance: BINIMETINIB
     Dosage: ONE TWICE A DAY
  7. MEKTOVI [Suspect]
     Active Substance: BINIMETINIB
     Dosage: TAKES 15MG TABLET TWO IN THE MORNING AND TWO IN THE EVENING

REACTIONS (12)
  - Skin discolouration [Unknown]
  - Hypertension [Unknown]
  - Hypersensitivity [Not Recovered/Not Resolved]
  - Alopecia [Recovering/Resolving]
  - Osteoarthritis [Unknown]
  - Dysphonia [Unknown]
  - Chest pain [Unknown]
  - Neoplasm progression [Unknown]
  - Intentional product misuse [Unknown]
  - Product use complaint [Unknown]
  - Off label use [Unknown]
  - Off label use [Unknown]

NARRATIVE: CASE EVENT DATE: 20230101
